FAERS Safety Report 4681501-8 (Version None)
Quarter: 2005Q2

REPORT INFORMATION
  Report Type: 
  Country: None (occurrence: None)
  Receive Date: 20050602
  Receipt Date: 20050520
  Transmission Date: 20051028
  Serious: Yes (Other)
  Sender: FDA-Public Use
  Company Number: 2005077237

PATIENT
  Age: 51 Year
  Sex: Female
  Weight: 52.1637 kg

DRUGS (1)
  1. SUDAFED 12 HOUR [Suspect]
     Indication: NARCOLEPSY
     Dosage: 2 CAPLETS EVERY NIGHT; ORAL
     Route: 048
     Dates: start: 19950101

REACTIONS (3)
  - HYSTERECTOMY [None]
  - MASS EXCISION [None]
  - THYROID MASS [None]
